FAERS Safety Report 8934986 (Version 1)
Quarter: 2012Q4

REPORT INFORMATION
  Report Type: 
  Country: JP (occurrence: JP)
  Receive Date: 20121129
  Receipt Date: 20121129
  Transmission Date: 20130627
  Serious: Yes (Hospitalization)
  Sender: FDA-Public Use
  Company Number: JP-PFIZER INC-2012296126

PATIENT
  Age: 85 Year
  Sex: Male

DRUGS (2)
  1. ZOSYN [Suspect]
     Indication: COMMUNITY ACQUIRED PNEUMONIA
     Dosage: 4.5 g, 2x/day
     Route: 041
     Dates: start: 20120608
  2. WARFARIN [Interacting]
     Dosage: UNK
     Route: 048
     Dates: end: 20120623

REACTIONS (2)
  - Pulmonary alveolar haemorrhage [Recovering/Resolving]
  - Drug interaction [Recovering/Resolving]
